FAERS Safety Report 20045032 (Version 2)
Quarter: 2022Q1

REPORT INFORMATION
  Report Type: Spontaneous
  Country: US (occurrence: US)
  Receive Date: 20211108
  Receipt Date: 20220208
  Transmission Date: 20220423
  Serious: Yes (Other)
  Sender: FDA-Public Use
  Company Number: US-SANOFI-00840358

PATIENT
  Sex: Female

DRUGS (5)
  1. ALLEGRA-D 24 HOUR [Suspect]
     Active Substance: FEXOFENADINE HYDROCHLORIDE\PSEUDOEPHEDRINE HYDROCHLORIDE
     Indication: Hypersensitivity
     Dosage: UNK UNK, QD (180 MG + 240MG)
     Route: 065
  2. LORATADINE [Suspect]
     Active Substance: LORATADINE
     Dosage: UNK
     Route: 065
  3. FEXOFENADINE HYDROCHLORIDE [Suspect]
     Active Substance: FEXOFENADINE HYDROCHLORIDE
     Dosage: UNK
     Route: 065
  4. PRACTIN [BROMOCRIPTINE MESILATE] [Concomitant]
     Dosage: 4 MG, QD
  5. ALLEGRA D 12HR [Concomitant]
     Dosage: UNK

REACTIONS (10)
  - Multiple sclerosis [Unknown]
  - Mental impairment [Unknown]
  - Speech disorder [Unknown]
  - Dysstasia [Unknown]
  - Abdominal discomfort [Unknown]
  - Heart rate increased [Unknown]
  - Headache [Unknown]
  - Allergic reaction to excipient [Unknown]
  - Therapeutic response prolonged [Unknown]
  - Insomnia [Unknown]
